FAERS Safety Report 21632689 (Version 2)
Quarter: 2024Q2

REPORT INFORMATION
  Report Type: Report from Study
  Country: US (occurrence: US)
  Receive Date: 20221123
  Receipt Date: 20240418
  Transmission Date: 20240716
  Serious: No
  Sender: FDA-Public Use
  Company Number: US-ABBVIE-22K-163-4347953-00

PATIENT
  Sex: Male

DRUGS (2)
  1. IMBRUVICA [Suspect]
     Active Substance: IBRUTINIB
     Indication: Marginal zone lymphoma
     Dosage: FORM STRENGTH: 560 MILLIGRAM
     Route: 048
     Dates: start: 20220221
  2. IMBRUVICA [Suspect]
     Active Substance: IBRUTINIB
     Indication: Marginal zone lymphoma
     Dosage: FORM STRENGTH: 560 MILLIGRAM
     Route: 048

REACTIONS (11)
  - Hypertension [Unknown]
  - Skin disorder [Not Recovered/Not Resolved]
  - Oropharyngeal pain [Recovered/Resolved]
  - Rash pustular [Not Recovered/Not Resolved]
  - Contusion [Not Recovered/Not Resolved]
  - Hypertension [Recovered/Resolved]
  - Platelet count decreased [Recovering/Resolving]
  - Oedema [Recovered/Resolved]
  - Rash macular [Not Recovered/Not Resolved]
  - Stomatitis [Recovering/Resolving]
  - Rash papular [Not Recovered/Not Resolved]
